FAERS Safety Report 13166064 (Version 1)
Quarter: 2017Q1

REPORT INFORMATION
  Report Type: Spontaneous
  Country: CA (occurrence: CA)
  Receive Date: 20170131
  Receipt Date: 20170131
  Transmission Date: 20170428
  Serious: Yes (Other)
  Sender: FDA-Public Use
  Company Number: CA-ORION CORPORATION ORION PHARMA-TREX2016-1384

PATIENT
  Age: 60 Year
  Sex: Female

DRUGS (6)
  1. NAPROSYN [Concomitant]
     Active Substance: NAPROXEN
     Route: 065
  2. CYMBALTA [Concomitant]
     Active Substance: DULOXETINE HYDROCHLORIDE
     Route: 065
  3. XELJANZ [Concomitant]
     Active Substance: TOFACITINIB CITRATE
     Route: 065
     Dates: start: 20160617
  4. GABAPENTIN. [Concomitant]
     Active Substance: GABAPENTIN
     Route: 065
  5. METHOTREXATE (TRADE NAME UNKNOWN) [Suspect]
     Active Substance: METHOTREXATE
     Route: 048
     Dates: start: 20160308
  6. METHOTREXATE (TRADE NAME UNKNOWN) [Suspect]
     Active Substance: METHOTREXATE
     Indication: RHEUMATOID ARTHRITIS
     Route: 048
     Dates: start: 20120718, end: 20130115

REACTIONS (14)
  - Arthralgia [Not Recovered/Not Resolved]
  - Fatigue [Not Recovered/Not Resolved]
  - Apathy [Not Recovered/Not Resolved]
  - Sinusitis [Unknown]
  - Swelling [Not Recovered/Not Resolved]
  - Weight loss poor [Not Recovered/Not Resolved]
  - Carpal tunnel syndrome [Recovered/Resolved]
  - Croup infectious [Unknown]
  - Nodule [Not Recovered/Not Resolved]
  - Cellulitis [Unknown]
  - Arthropathy [Not Recovered/Not Resolved]
  - Nasopharyngitis [Unknown]
  - Upper limb fracture [Unknown]
  - Onychomadesis [Recovered/Resolved]

NARRATIVE: CASE EVENT DATE: 201608
